FAERS Safety Report 10077022 (Version 2)
Quarter: 2014Q3

REPORT INFORMATION
  Report Type: Spontaneous
  Country: DE (occurrence: DE)
  Receive Date: 20140414
  Receipt Date: 20140908
  Transmission Date: 20150326
  Serious: Yes (Other)
  Sender: FDA-Public Use
  Company Number: DE-ALLERGAN-1407153US

PATIENT
  Sex: Female

DRUGS (4)
  1. SPERSACARPIN [Concomitant]
     Dosage: UNK, ONCE NIGHTLY
  2. AZOPT [Suspect]
     Active Substance: BRINZOLAMIDE
     Indication: INTRAOCULAR PRESSURE FLUCTUATION
  3. COMBIGAN [Suspect]
     Active Substance: BRIMONIDINE TARTRATE\TIMOLOL MALEATE
     Indication: DEVELOPMENTAL GLAUCOMA
     Dosage: UNK, TWICE A DAY
     Dates: start: 2012
  4. DIAMOX SEQUELS [Concomitant]
     Active Substance: ACETAZOLAMIDE
     Dosage: UNK, AS NEEDED
     Route: 048

REACTIONS (3)
  - Intraocular pressure fluctuation [Not Recovered/Not Resolved]
  - Intraocular pressure increased [Unknown]
  - Therapeutic response decreased [Unknown]

NARRATIVE: CASE EVENT DATE: 2014
